FAERS Safety Report 25231555 (Version 2)
Quarter: 2025Q2

REPORT INFORMATION
  Report Type: Report from Study
  Country: JP (occurrence: JP)
  Receive Date: 20250423
  Receipt Date: 20250605
  Transmission Date: 20250716
  Serious: Yes (Death)
  Sender: ROCHE
  Company Number: JP-ROCHE-10000265247

PATIENT

DRUGS (4)
  1. RITUXAN [Suspect]
     Active Substance: RITUXIMAB
     Indication: Rheumatic disorder
     Route: 042
  2. RITUXAN [Suspect]
     Active Substance: RITUXIMAB
     Indication: Microscopic polyangiitis
  3. RITUXAN [Suspect]
     Active Substance: RITUXIMAB
     Indication: Granulomatosis with polyangiitis
  4. RITUXAN [Suspect]
     Active Substance: RITUXIMAB
     Indication: Scleroderma

REACTIONS (3)
  - COVID-19 [Fatal]
  - Haematological infection [Fatal]
  - Pneumonia bacterial [Unknown]
